FAERS Safety Report 8047003-6 (Version None)
Quarter: 2012Q1

REPORT INFORMATION
  Report Type: 
  Country: None (occurrence: None)
  Receive Date: 20120116
  Receipt Date: 20120111
  Transmission Date: 20120608
  Serious: Yes (Hospitalization)
  Sender: FDA-Public Use
  Company Number: DK-JNJFOC-20120101063

PATIENT
  Sex: Male
  Weight: 109 kg

DRUGS (14)
  1. CYCLOPHOSPHAMIDE [Suspect]
     Route: 042
     Dates: start: 20110901
  2. CIPROFLOXACIN [Concomitant]
     Route: 065
     Dates: start: 20110818
  3. NEUPOGEN [Suspect]
     Route: 058
     Dates: start: 20110904
  4. RITUXIMAB [Suspect]
     Indication: DIFFUSE LARGE B-CELL LYMPHOMA
     Route: 042
     Dates: start: 20110811
  5. PREDNISONE [Suspect]
     Indication: DIFFUSE LARGE B-CELL LYMPHOMA
     Route: 048
     Dates: start: 20110811
  6. DOXORUBICIN HCL [Suspect]
     Indication: DIFFUSE LARGE B-CELL LYMPHOMA
     Route: 042
     Dates: start: 20110901
  7. PREDNISONE [Suspect]
     Route: 042
     Dates: start: 20110901
  8. AMOXICILLIN AND CLAVULANATE POTASSIUM [Concomitant]
     Route: 065
     Dates: start: 20110818
  9. VINCRISTINE [Suspect]
     Route: 042
     Dates: start: 20110811
  10. DOXORUBICIN HCL [Suspect]
     Route: 042
     Dates: start: 20110811
  11. NEUPOGEN [Suspect]
     Indication: DIFFUSE LARGE B-CELL LYMPHOMA
     Route: 058
     Dates: start: 20110815
  12. CYCLOPHOSPHAMIDE [Suspect]
     Indication: DIFFUSE LARGE B-CELL LYMPHOMA
     Route: 042
     Dates: start: 20110811
  13. VINCRISTINE [Suspect]
     Indication: DIFFUSE LARGE B-CELL LYMPHOMA
     Route: 042
     Dates: start: 20110901
  14. SULFAMETHOXAZOLE [Concomitant]
     Route: 065
     Dates: start: 20110812

REACTIONS (2)
  - PNEUMONIA [None]
  - ERYSIPELAS [None]
